FAERS Safety Report 17079680 (Version 1)
Quarter: 2019Q4

REPORT INFORMATION
  Report Type: Spontaneous
  Country: US (occurrence: US)
  Receive Date: 20191029
  Receipt Date: 20191029
  Transmission Date: 20200122
  Serious: No
  Sender: FDA-Public Use
  Company Number: None

PATIENT
  Age: 55 Year
  Sex: Female

DRUGS (1)
  1. REBIF [Suspect]
     Active Substance: INTERFERON BETA-1A
     Indication: MULTIPLE SCLEROSIS
     Dosage: ?          OTHER FREQUENCY:OTHER;?
     Route: 058
     Dates: start: 20180307

REACTIONS (5)
  - Intentional dose omission [None]
  - Intentional product use issue [None]
  - Pain [None]
  - Sciatica [None]
  - Musculoskeletal stiffness [None]

NARRATIVE: CASE EVENT DATE: 20191029
